FAERS Safety Report 9364916 (Version 1)
Quarter: 2013Q2

REPORT INFORMATION
  Report Type: Spontaneous
  Country: GB (occurrence: GB)
  Receive Date: 20130624
  Receipt Date: 20130624
  Transmission Date: 20140414
  Serious: Yes (Other)
  Sender: FDA-Public Use
  Company Number: GB-VERTEX PHARMACEUTICALS INC-2013-007389

PATIENT
  Age: 55 Year
  Sex: 0

DRUGS (7)
  1. INCIVO [Suspect]
     Indication: HEPATITIS C
     Route: 048
  2. RIBAVIRIN [Suspect]
     Indication: HEPATITIS C
     Dosage: DOSAGE FORM: TABLETS
     Route: 048
  3. PEGINTERFERON ALFA-2B [Suspect]
     Indication: HEPATITIS C
     Dosage: DOSAGE FORM: INJECTION
     Route: 058
  4. CLOZAPINE [Concomitant]
     Dosage: DOSAGE FORM: UNKNOWN
     Route: 065
  5. ARIPIPRAZOLE [Concomitant]
     Dosage: DOSAGE FORM: UNKNOWN
     Route: 065
  6. CITALOPRAM [Concomitant]
     Dosage: DOSAGE FORM: UNSPECIFIED
     Route: 065
  7. TOPIRAMATE [Concomitant]
     Dosage: DOSAGE FORM: UNSPECIFIED
     Route: 065

REACTIONS (3)
  - White blood cell count decreased [Unknown]
  - Haemoglobin decreased [Unknown]
  - Platelet count decreased [Unknown]
